FAERS Safety Report 8546543-0 (Version None)
Quarter: 2012Q3

REPORT INFORMATION
  Report Type: 
  Country: None (occurrence: None)
  Receive Date: 20120727
  Receipt Date: 20111221
  Transmission Date: 20120928
  Serious: No
  Sender: FDA-Public Use
  Company Number: US-ASTRAZENECA-2011SE77875

PATIENT
  Sex: Female

DRUGS (5)
  1. ASTERVIN [Concomitant]
  2. NEXIUM [Concomitant]
     Route: 048
  3. DYPHENHYPHALINE [Concomitant]
     Indication: SLEEP DISORDER
     Route: 048
  4. ROZERUM [Concomitant]
     Indication: SLEEP DISORDER
     Route: 048
  5. SEROQUEL [Suspect]
     Indication: SLEEP DISORDER
     Route: 048

REACTIONS (3)
  - INSOMNIA [None]
  - DRUG PRESCRIBING ERROR [None]
  - DRUG INEFFECTIVE FOR UNAPPROVED INDICATION [None]
